FAERS Safety Report 14977680 (Version 1)
Quarter: 2018Q2

REPORT INFORMATION
  Report Type: Spontaneous
  Country: US (occurrence: US)
  Receive Date: 20180515
  Receipt Date: 20180515
  Transmission Date: 20180711
  Serious: Yes (Other)
  Sender: FDA-Public Use
  Company Number: None

PATIENT
  Age: 10 Year
  Sex: Female
  Weight: 46.35 kg

DRUGS (4)
  1. GENERIC CEFDINIR 250 MG/5 ML SUSPENSION; COMMON BRAND NAME OMNICEF [Suspect]
     Active Substance: CEFDINIR
     Indication: EAR INFECTION
     Dosage: QUANTITY:2.75 TEASPOON(S);?
     Route: 048
     Dates: start: 20180410, end: 20180416
  2. AMOXYCILLIN [Suspect]
     Active Substance: AMOXICILLIN
     Indication: EAR INFECTION
     Route: 048
     Dates: start: 20180321, end: 20180331
  3. VANCOMYCIN [Concomitant]
     Active Substance: VANCOMYCIN
  4. PROBIOTICS [Concomitant]
     Active Substance: PROBIOTICS NOS

REACTIONS (6)
  - Clostridium difficile infection [None]
  - Clostridium test positive [None]
  - Diarrhoea [None]
  - Pyrexia [None]
  - Respiratory tract infection viral [None]
  - Dyspnoea [None]

NARRATIVE: CASE EVENT DATE: 20180416
